FAERS Safety Report 6328463-5 (Version None)
Quarter: 2009Q3

REPORT INFORMATION
  Report Type: 
  Country: None (occurrence: None)
  Receive Date: 20090825
  Receipt Date: 20090625
  Transmission Date: 20100115
  Serious: No
  Sender: FDA-Public Use
  Company Number: US-ABBOTT-09P-163-0582611-00

PATIENT
  Sex: Male
  Weight: 16.344 kg

DRUGS (2)
  1. SYNTHROID [Suspect]
     Indication: DRUG USE FOR UNKNOWN INDICATION
     Dosage: 75 MCG X 6 TABLETS
     Dates: start: 20090622, end: 20090622
  2. CYTOMEL [Suspect]
     Indication: DRUG USE FOR UNKNOWN INDICATION
     Dosage: 5MG X 8 TABLET
     Dates: start: 20090622, end: 20090622

REACTIONS (1)
  - ACCIDENTAL OVERDOSE [None]
